FAERS Safety Report 6829786-3 (Version None)
Quarter: 2010Q3

REPORT INFORMATION
  Report Type: 
  Country: None (occurrence: None)
  Receive Date: 20100709
  Receipt Date: 20080301
  Transmission Date: 20110219
  Serious: No
  Sender: FDA-Public Use
  Company Number: US-PFIZER INC-2007005292

PATIENT
  Sex: Female
  Weight: 58.97 kg

DRUGS (17)
  1. CHANTIX [Suspect]
     Indication: SMOKING CESSATION THERAPY
     Route: 048
     Dates: start: 20061101
  2. LASIX [Concomitant]
  3. TENORMIN [Concomitant]
  4. EFFEXOR [Concomitant]
  5. FOLIC ACID [Concomitant]
  6. ISOSORBIDE MONONITRATE [Concomitant]
  7. HYOSCYAMINE [Concomitant]
  8. POTASSIUM [Concomitant]
  9. PLAVIX [Concomitant]
  10. NEXIUM [Concomitant]
  11. XANAX [Concomitant]
  12. ENALAPRIL MALEATE [Concomitant]
  13. VALTREX [Concomitant]
     Indication: ORAL HERPES
  14. CYANOCOBALAMIN [Concomitant]
  15. CALCIUM CARBONATE [Concomitant]
  16. ERGOCALCIFEROL [Concomitant]
  17. VITAMINS [Concomitant]

REACTIONS (1)
  - BRONCHITIS [None]
